FAERS Safety Report 9549176 (Version 1)
Quarter: 2013Q3

REPORT INFORMATION
  Report Type: Report from Study
  Country: US (occurrence: US)
  Receive Date: 20130924
  Receipt Date: 20130924
  Transmission Date: 20140515
  Serious: Yes (Hospitalization)
  Sender: FDA-Public Use
  Company Number: US-ABBVIE-13P-163-1148118-00

PATIENT
  Age: 60 Year
  Sex: Male

DRUGS (11)
  1. HUMIRA [Suspect]
     Indication: ANKYLOSING SPONDYLITIS
     Dates: start: 20130813
  2. DILAUDID [Concomitant]
     Indication: PAIN
     Dosage: EVERY 4 HOURS, AS NEEDED, TAKES RARELY
  3. LORATIDINE [Concomitant]
     Indication: HYPERSENSITIVITY
  4. METFORMIN [Concomitant]
     Indication: DIABETES MELLITUS
  5. DIOVAN [Concomitant]
     Indication: DIABETES MELLITUS
  6. MELOXICAM [Concomitant]
     Indication: PAIN
  7. TOPROL [Concomitant]
     Indication: HYPERTENSION
  8. DILTIAZEM [Concomitant]
     Indication: HYPERTENSION
     Dosage: 180/24MG DAILY
  9. SYNTHROID [Concomitant]
     Indication: HYPOTHYROIDISM
  10. ASA [Concomitant]
     Indication: PRODUCT USED FOR UNKNOWN INDICATION
  11. RANITIDINE [Concomitant]
     Indication: PROPHYLAXIS AGAINST GASTROINTESTINAL ULCER

REACTIONS (6)
  - Blood potassium abnormal [Recovering/Resolving]
  - Blood magnesium abnormal [Recovering/Resolving]
  - Sepsis [Recovering/Resolving]
  - Urinary tract infection [Recovering/Resolving]
  - Fall [Recovered/Resolved]
  - Asthenia [Recovering/Resolving]
